FAERS Safety Report 10414137 (Version 2)
Quarter: 2014Q3

REPORT INFORMATION
  Report Type: Spontaneous
  Country: US (occurrence: US)
  Receive Date: 20140827
  Receipt Date: 20140827
  Transmission Date: 20150326
  Serious: No
  Sender: FDA-Public Use
  Company Number: US-ASTRAZENECA-2013SE79765

PATIENT
  Sex: Female

DRUGS (1)
  1. SYMBICORT [Suspect]
     Active Substance: BUDESONIDE\FORMOTEROL FUMARATE DIHYDRATE
     Indication: ASTHMA
     Dosage: 160/ 4.5 MCG, 2 PUFFS 3 TIMES A DAY AS REQUIRED
     Route: 055
     Dates: start: 201005

REACTIONS (4)
  - Intentional product misuse [Unknown]
  - Drug prescribing error [Unknown]
  - Drug dose omission [Not Recovered/Not Resolved]
  - Dyspnoea [Unknown]

NARRATIVE: CASE EVENT DATE: 20131023
